FAERS Safety Report 7672571-3 (Version None)
Quarter: 2011Q3

REPORT INFORMATION
  Report Type: 
  Country: None (occurrence: None)
  Receive Date: 20110809
  Receipt Date: 20110614
  Transmission Date: 20111222
  Serious: No
  Sender: FDA-Public Use
  Company Number: US-B.I. PHARMACEUTICALS,INC./RIDGEFIELD-2010-BP-06329BP

PATIENT
  Sex: Female
  Weight: 99.79 kg

DRUGS (1)
  1. MIRAPEX [Suspect]
     Indication: RESTLESS LEGS SYNDROME
     Dates: start: 20010102

REACTIONS (9)
  - PAIN [None]
  - STRESS [None]
  - OBSESSIVE-COMPULSIVE DISORDER [None]
  - TREMOR [None]
  - ANXIETY [None]
  - DEPRESSION [None]
  - PATHOLOGICAL GAMBLING [None]
  - EMOTIONAL DISTRESS [None]
  - FATIGUE [None]
